FAERS Safety Report 12475562 (Version 1)
Quarter: 2016Q2

REPORT INFORMATION
  Report Type: Spontaneous
  Country: FR (occurrence: FR)
  Receive Date: 20160617
  Receipt Date: 20160617
  Transmission Date: 20160815
  Serious: Yes (Hospitalization)
  Sender: FDA-Public Use
  Company Number: FR-009507513-1606FRA003869

PATIENT
  Age: 74 Year
  Sex: Male

DRUGS (6)
  1. TRANXENE T-TAB [Concomitant]
     Active Substance: CLORAZEPATE DIPOTASSIUM
  2. TEMESTA [Concomitant]
     Active Substance: LORAZEPAM
  3. KEPPRA [Concomitant]
     Active Substance: LEVETIRACETAM
  4. EUPANTOL [Concomitant]
     Active Substance: PANTOPRAZOLE SODIUM
  5. TEMODAL [Suspect]
     Active Substance: TEMOZOLOMIDE
     Indication: GLIOBLASTOMA
     Dosage: UNK
     Route: 048
     Dates: start: 20150304, end: 20151123
  6. ZEBINIX [Concomitant]
     Active Substance: ESLICARBAZEPINE ACETATE

REACTIONS (1)
  - Organising pneumonia [Recovering/Resolving]

NARRATIVE: CASE EVENT DATE: 201509
